FAERS Safety Report 8970029 (Version 3)
Quarter: 2013Q1

REPORT INFORMATION
  Report Type: Spontaneous
  Country: US (occurrence: US)
  Receive Date: 20121218
  Receipt Date: 20130308
  Transmission Date: 20140127
  Serious: Yes (Other)
  Sender: FDA-Public Use
  Company Number: US-BAYER-2012-132505

PATIENT
  Age: 52 Year
  Sex: Female

DRUGS (1)
  1. MIRENA [Suspect]
     Indication: MENORRHAGIA
     Dosage: 20 MCG/24HR, CONT
     Route: 015
     Dates: start: 2012

REACTIONS (8)
  - Device difficult to use [None]
  - Drug ineffective [Not Recovered/Not Resolved]
  - Device difficult to use [Not Recovered/Not Resolved]
  - Implant site calcification [None]
  - Pain [Not Recovered/Not Resolved]
  - Device expulsion [None]
  - Discomfort [Not Recovered/Not Resolved]
  - Post procedural haemorrhage [None]
